FAERS Safety Report 16600830 (Version 1)
Quarter: 2019Q3

REPORT INFORMATION
  Report Type: Spontaneous
  Country: IT (occurrence: DK)
  Receive Date: 20190719
  Receipt Date: 20190719
  Transmission Date: 20191004
  Serious: Yes (Hospitalization)
  Sender: FDA-Public Use
  Company Number: IT-SUNOVION-2019SUN003028

PATIENT

DRUGS (1)
  1. LATUDA [Suspect]
     Active Substance: LURASIDONE HYDROCHLORIDE
     Indication: SCHIZOPHRENIA
     Dosage: UNK
     Route: 048
     Dates: start: 20190304, end: 20190628

REACTIONS (3)
  - Dystonia [Recovered/Resolved]
  - Eye movement disorder [Recovered/Resolved]
  - Torticollis [Recovered/Resolved]

NARRATIVE: CASE EVENT DATE: 20190627
